FAERS Safety Report 6379053-X (Version None)
Quarter: 2009Q3

REPORT INFORMATION
  Report Type: 
  Country: None (occurrence: None)
  Receive Date: 20090928
  Receipt Date: 20090917
  Transmission Date: 20100115
  Serious: Yes (Hospitalization)
  Sender: FDA-Public Use
  Company Number: US-ASTRAZENECA-2009SE13956

PATIENT
  Sex: Female

DRUGS (1)
  1. MERREM [Suspect]
     Route: 065

REACTIONS (1)
  - DRUG HYPERSENSITIVITY [None]
